FAERS Safety Report 5405712-9 (Version None)
Quarter: 2007Q3

REPORT INFORMATION
  Report Type: 
  Country: None (occurrence: None)
  Receive Date: 20070801
  Receipt Date: 20070723
  Transmission Date: 20080115
  Serious: Yes (Hospitalization)
  Sender: FDA-Public Use
  Company Number: 2007S1000577

PATIENT
  Age: 33 Year
  Sex: Male

DRUGS (2)
  1. AZASAN [Suspect]
     Indication: COLITIS ULCERATIVE
     Dates: start: 20070601
  2. COLAZAL [Suspect]
     Indication: COLITIS ULCERATIVE
     Dosage: 750 MG; TID; PO
     Route: 048
     Dates: start: 20060401

REACTIONS (4)
  - DEHYDRATION [None]
  - PYREXIA [None]
  - RENAL FAILURE ACUTE [None]
  - RENAL TUBULAR NECROSIS [None]
